FAERS Safety Report 14880978 (Version 1)
Quarter: 2018Q2

REPORT INFORMATION
  Report Type: Spontaneous
  Country: US (occurrence: US)
  Receive Date: 20180511
  Receipt Date: 20180511
  Transmission Date: 20180711
  Serious: No
  Sender: FDA-Public Use
  Company Number: US-TEVA-2018-US-890078

PATIENT
  Sex: Female

DRUGS (1)
  1. NABUMETONE. [Suspect]
     Active Substance: NABUMETONE
     Indication: PAIN IN EXTREMITY
     Route: 065

REACTIONS (3)
  - Pruritus [Unknown]
  - Aneurysm [Unknown]
  - Rash [Unknown]
